FAERS Safety Report 8313993-7 (Version None)
Quarter: 2012Q2

REPORT INFORMATION
  Report Type: 
  Country: None (occurrence: None)
  Receive Date: 20120426
  Receipt Date: 20110808
  Transmission Date: 20120825
  Serious: Yes (Other)
  Sender: FDA-Public Use
  Company Number: US-TEVA-US022505

PATIENT
  Sex: Female

DRUGS (8)
  1. NORVASC [Concomitant]
     Indication: HYPERTENSION
     Route: 048
  2. PROTONIX [Concomitant]
     Route: 048
  3. MIDRIN [Suspect]
     Indication: HYPOTENSION
     Route: 048
  4. ZOCOR [Concomitant]
     Indication: HYPERCHOLESTEROLAEMIA
     Route: 048
  5. PROVIGIL [Suspect]
     Dosage: 100 MILLIGRAM;
     Route: 048
     Dates: start: 20080130
  6. LISINOPRIL [Concomitant]
     Indication: HYPERTENSION
     Route: 048
  7. PLAVIX [Concomitant]
     Route: 048
  8. DIGOXIN [Concomitant]
     Route: 048

REACTIONS (1)
  - HYPOTENSION [None]
